FAERS Safety Report 10794461 (Version 1)
Quarter: 2015Q1

REPORT INFORMATION
  Report Type: Spontaneous
  Country: US (occurrence: US)
  Receive Date: 20150213
  Receipt Date: 20150213
  Transmission Date: 20150721
  Serious: Yes (Hospitalization)
  Sender: FDA-Public Use
  Company Number: US-BAUSCH-BL-2015-002391

PATIENT
  Age: 7 Year
  Sex: Female
  Weight: 15.89 kg

DRUGS (8)
  1. XENAZINE [Suspect]
     Active Substance: TETRABENAZINE
     Indication: DYSKINESIA
     Dosage: 12.5 MG, ? TABLET DAILY IN THE MORNING FOR ONE WEEK
     Route: 048
     Dates: start: 20150117
  2. GABAPENTIN. [Concomitant]
     Active Substance: GABAPENTIN
     Indication: PRODUCT USED FOR UNKNOWN INDICATION
     Dates: start: 20090224
  3. BACLOFEN. [Concomitant]
     Active Substance: BACLOFEN
     Indication: PRODUCT USED FOR UNKNOWN INDICATION
     Dates: start: 20120816
  4. ALBUTEROL. [Concomitant]
     Active Substance: ALBUTEROL
     Indication: PRODUCT USED FOR UNKNOWN INDICATION
  5. CARBIDOPA/LEVODOPA [Concomitant]
     Active Substance: CARBIDOPA\LEVODOPA
     Indication: PRODUCT USED FOR UNKNOWN INDICATION
     Dates: start: 20121120
  6. DIAZEPAM. [Concomitant]
     Active Substance: DIAZEPAM
     Indication: PRODUCT USED FOR UNKNOWN INDICATION
     Dates: start: 20110304
  7. CLONIDINE. [Concomitant]
     Active Substance: CLONIDINE
     Indication: PRODUCT USED FOR UNKNOWN INDICATION
  8. XENAZINE [Suspect]
     Active Substance: TETRABENAZINE
     Indication: CHOREA
     Route: 048
     Dates: start: 20150125, end: 20150130

REACTIONS (20)
  - Insomnia [Unknown]
  - Somnolence [Unknown]
  - Agitation [Unknown]
  - Musculoskeletal stiffness [Unknown]
  - Tardive dyskinesia [Unknown]
  - Off label use [Recovered/Resolved]
  - Hypotension [Unknown]
  - Myalgia [Unknown]
  - Weight decreased [Recovered/Resolved]
  - Irritability [Unknown]
  - Tremor [Recovering/Resolving]
  - Discomfort [Unknown]
  - Crying [Unknown]
  - Depression [Recovered/Resolved]
  - Drug administration error [Recovered/Resolved]
  - Vomiting [Recovered/Resolved]
  - Movement disorder [Recovering/Resolving]
  - Retching [Recovered/Resolved]
  - Dystonia [Unknown]
  - Anxiety [Recovered/Resolved]

NARRATIVE: CASE EVENT DATE: 20150117
